FAERS Safety Report 4384624-6 (Version None)
Quarter: 2004Q2

REPORT INFORMATION
  Report Type: 
  Country: None (occurrence: None)
  Receive Date: 20040625
  Receipt Date: 20030807
  Transmission Date: 20050107
  Serious: No
  Sender: FDA-Public Use
  Company Number: US-BRISTOL-MYERS SQUIBB COMPANY-12349411

PATIENT
  Sex: Female
  Weight: 93 kg

DRUGS (1)
  1. SINEMET CR [Suspect]
     Dosage: 50/200MG; ^AT LEAST TWO YEARS^
     Route: 048

REACTIONS (1)
  - ENDOCRINE TEST ABNORMAL [None]
